FAERS Safety Report 19121912 (Version 1)
Quarter: 2021Q2

REPORT INFORMATION
  Report Type: Spontaneous
  Country: US (occurrence: US)
  Receive Date: 20210412
  Receipt Date: 20210412
  Transmission Date: 20210717
  Serious: Yes (Other)
  Sender: FDA-Public Use
  Company Number: None

PATIENT
  Sex: Male

DRUGS (2)
  1. AQUAPHOR [Suspect]
     Active Substance: PETROLATUM
  2. HYDROCORTISONE 2.5% [Suspect]
     Active Substance: HYDROCORTISONE

REACTIONS (2)
  - Adverse reaction [None]
  - Drug ineffective [None]
